FAERS Safety Report 7684069-7 (Version None)
Quarter: 2011Q3

REPORT INFORMATION
  Report Type: 
  Country: None (occurrence: None)
  Receive Date: 20110815
  Receipt Date: 20110804
  Transmission Date: 20111222
  Serious: Yes (Death, Hospitalization)
  Sender: FDA-Public Use
  Company Number: CA-CELGENEUS-028-CCAZA-11050202

PATIENT
  Sex: Male
  Weight: 71 kg

DRUGS (26)
  1. AZACITIDINE [Suspect]
     Dosage: 75 MILLIGRAM/SQ. METER
     Route: 058
     Dates: start: 20110404, end: 20110410
  2. ZANTAC [Concomitant]
     Dosage: 150 MILLIGRAM
     Route: 048
     Dates: start: 20110201
  3. ONDANSETRON [Concomitant]
     Indication: NAUSEA
     Dosage: 8 MILLIGRAM
     Route: 048
     Dates: start: 20110404, end: 20110410
  4. PROCHLORPERAZINE [Concomitant]
     Indication: NAUSEA
     Dosage: 10 MILLIGRAM
     Route: 041
     Dates: start: 20110411, end: 20110411
  5. AZITHROMYCIN [Concomitant]
     Dosage: 250 MILLIGRAM
     Route: 048
     Dates: start: 20110402, end: 20110410
  6. MIDAZOLAM HCL [Concomitant]
     Dosage: 6 MILLIGRAM
     Route: 041
     Dates: start: 20110324, end: 20110324
  7. GENTAMICIN [Concomitant]
     Indication: SEPSIS
     Dosage: 350 MILLIGRAM
     Route: 041
     Dates: start: 20110411, end: 20110417
  8. LORAZEPAM [Concomitant]
     Indication: INSOMNIA
     Dosage: 10 MILLIGRAM
     Route: 048
     Dates: start: 20110411, end: 20110417
  9. ASPIRIN [Concomitant]
     Indication: PROPHYLAXIS
     Dosage: 81 MILLIGRAM
     Route: 048
     Dates: start: 20110201
  10. LEVOFLOXACIN [Concomitant]
     Indication: FEBRILE NEUTROPENIA
     Dosage: 500 MILLIGRAM
     Route: 048
     Dates: start: 20110325, end: 20110401
  11. ALTACE [Concomitant]
     Indication: BLOOD PRESSURE MANAGEMENT
     Dosage: 5 MILLIGRAM
     Route: 048
     Dates: start: 20110330
  12. METRONIDAZOLE [Concomitant]
     Indication: FEBRILE NEUTROPENIA
  13. METOPROLOL TARTRATE [Concomitant]
     Indication: HYPERTENSION
     Dosage: 12.5 MILLIGRAM
     Route: 048
     Dates: start: 20110201
  14. CRESTOR [Concomitant]
     Dosage: 10 MILLIGRAM
     Route: 048
     Dates: start: 20110201
  15. MEROPENEM [Concomitant]
     Dosage: 1 GRAM
     Route: 041
     Dates: start: 20110412, end: 20110413
  16. LASIX [Concomitant]
     Indication: FLUID OVERLOAD
     Dosage: 20 MILLIGRAM
     Route: 041
     Dates: start: 20110415, end: 20110415
  17. VITAMIN K TAB [Concomitant]
     Indication: ANTICOAGULANT THERAPY
     Dosage: 10 MILLIGRAM
     Route: 041
     Dates: start: 20110415, end: 20110417
  18. VORICONAZOLE [Concomitant]
     Indication: ANTIFUNGAL PROPHYLAXIS
     Dosage: 400 MILLIGRAM
     Route: 048
     Dates: start: 20110322, end: 20110323
  19. VORICONAZOLE [Concomitant]
     Dosage: 200 MILLIGRAM
     Route: 048
     Dates: start: 20110323
  20. MEROPENEM [Concomitant]
     Indication: SEPSIS
     Dosage: 1 GRAM
     Route: 041
     Dates: start: 20110411, end: 20110412
  21. METRONIDAZOLE [Concomitant]
     Indication: CLOSTRIDIAL INFECTION
     Dosage: 500 MILLIGRAM
     Route: 048
     Dates: start: 20110412, end: 20110413
  22. SODIUM CHLORIDE [Concomitant]
     Dosage: 1000 MILLILITER
     Route: 041
     Dates: start: 20110411, end: 20110411
  23. DIMENHYDRINATE [Concomitant]
     Indication: NAUSEA
     Dosage: 30 MILLIGRAM
     Route: 048
     Dates: start: 20110411, end: 20110411
  24. MOXIFLOXACIN [Concomitant]
     Indication: PNEUMONIA
     Dosage: 400 MILLIGRAM
     Route: 048
     Dates: start: 20110404, end: 20110411
  25. AZITHROMYCIN [Concomitant]
     Indication: PNEUMONIA
     Dosage: 500 MILLIGRAM
     Route: 048
     Dates: start: 20110401, end: 20110401
  26. CODEINE SULFATE [Concomitant]
     Dosage: 30 MILLIGRAM
     Route: 048
     Dates: start: 20110411, end: 20110417

REACTIONS (5)
  - RENAL FAILURE ACUTE [None]
  - SEPSIS [None]
  - CLOSTRIDIUM DIFFICILE COLITIS [None]
  - FEBRILE NEUTROPENIA [None]
  - RENAL TUBULAR NECROSIS [None]
